FAERS Safety Report 8855013 (Version 1)
Quarter: 2012Q4

REPORT INFORMATION
  Report Type: 
  Country: MX (occurrence: MX)
  Receive Date: 20121023
  Receipt Date: 20121023
  Transmission Date: 20130627
  Serious: Yes (Hospitalization)
  Sender: FDA-Public Use
  Company Number: PHHY2012MX094047

PATIENT
  Age: 75 Year
  Sex: Female

DRUGS (3)
  1. CO-DIOVAN [Suspect]
     Indication: HYPERTENSION
     Dosage: 1 DF (160 mg vals, 12,5 mg hydrochl) per day
     Route: 048
     Dates: start: 201105
  2. CONCOR [Concomitant]
     Indication: BLOOD PRESSURE
     Dosage: 1 DF, per day
  3. PRADAXAR [Concomitant]
     Dosage: 2 DF, per day

REACTIONS (1)
  - Arthropathy [Recovered/Resolved]
